FAERS Safety Report 15098862 (Version 1)
Quarter: 2018Q3

REPORT INFORMATION
  Report Type: Spontaneous
  Country: FR (occurrence: FR)
  Receive Date: 20180702
  Receipt Date: 20180702
  Transmission Date: 20181010
  Serious: Yes (Hospitalization, Other)
  Sender: FDA-Public Use
  Company Number: FR-PFIZER INC-2018261645

PATIENT
  Age: 64 Year
  Sex: Male
  Weight: 86 kg

DRUGS (3)
  1. AUGMENTIN [Suspect]
     Active Substance: AMOXICILLIN\CLAVULANATE POTASSIUM
     Indication: OSTEITIS
     Dosage: 8 G, 1X/DAY
     Route: 048
     Dates: start: 20180505, end: 20180524
  2. DALACINE [Suspect]
     Active Substance: CLINDAMYCIN
     Dosage: 1800 MG, 1X/DAY
     Route: 048
     Dates: start: 20180505, end: 20180524
  3. BACTRIM [Suspect]
     Active Substance: SULFAMETHOXAZOLE\TRIMETHOPRIM
     Indication: OSTEITIS
     Dosage: 2400 MG, 1X/DAY
     Route: 048
     Dates: start: 20180505, end: 20180524

REACTIONS (4)
  - Burn oesophageal [Not Recovered/Not Resolved]
  - Abdominal pain upper [Not Recovered/Not Resolved]
  - Oesophagitis [Not Recovered/Not Resolved]
  - Gastritis [Not Recovered/Not Resolved]

NARRATIVE: CASE EVENT DATE: 20180507
